FAERS Safety Report 6371578-6 (Version None)
Quarter: 2009Q3

REPORT INFORMATION
  Report Type: 
  Country: None (occurrence: None)
  Receive Date: 20090923
  Receipt Date: 20071204
  Transmission Date: 20100115
  Serious: Yes (Other)
  Sender: FDA-Public Use
  Company Number: US-ASTRAZENECA-2007UW19276

PATIENT
  Age: 33 Year
  Sex: Female

DRUGS (18)
  1. SEROQUEL [Suspect]
     Indication: SLEEP DISORDER
     Dosage: 25 MG - 600 MG
     Route: 048
     Dates: start: 20020703, end: 20070622
  2. SEROQUEL [Suspect]
     Dosage: 600 MG - 100 MG
     Route: 048
     Dates: start: 20020801, end: 20070101
  3. RISPERDAL [Concomitant]
     Dates: start: 20020601, end: 20020701
  4. RISPERDAL [Concomitant]
     Dates: start: 20060901
  5. XANAX [Concomitant]
  6. EFFEXOR [Concomitant]
  7. KLONOPIN [Concomitant]
  8. REMERON [Concomitant]
  9. TOPAMAX [Concomitant]
  10. RESTORIL [Concomitant]
  11. VALIUM [Concomitant]
  12. CELEXA [Concomitant]
  13. AMBIEN [Concomitant]
  14. SERZONE [Concomitant]
  15. PROZAC [Concomitant]
  16. DALMANE [Concomitant]
  17. ATIVAN [Concomitant]
  18. TEGRETOL [Concomitant]

REACTIONS (4)
  - DIABETES MELLITUS [None]
  - PANCREATITIS [None]
  - PANCREATITIS ACUTE [None]
  - WEIGHT INCREASED [None]
